FAERS Safety Report 14858564 (Version 1)
Quarter: 2018Q2

REPORT INFORMATION
  Report Type: Spontaneous
  Country: US (occurrence: US)
  Receive Date: 20180419
  Receipt Date: 20180419
  Transmission Date: 20180711
  Serious: No
  Sender: FDA-Public Use
  Company Number: None

PATIENT
  Age: 62 Year
  Sex: Female

DRUGS (1)
  1. AFINITOR [Suspect]
     Active Substance: EVEROLIMUS

REACTIONS (7)
  - Erythema [None]
  - Pain [None]
  - Skin odour abnormal [None]
  - Gait disturbance [None]
  - Stevens-Johnson syndrome [None]
  - Dermatitis [None]
  - Sticky skin [None]

NARRATIVE: CASE EVENT DATE: 20180419
